FAERS Safety Report 16994186 (Version 1)
Quarter: 2019Q4

REPORT INFORMATION
  Report Type: Spontaneous
  Country: ES (occurrence: ES)
  Receive Date: 20191105
  Receipt Date: 20191105
  Transmission Date: 20200122
  Serious: Yes (Life-Threatening, Hospitalization)
  Sender: FDA-Public Use
  Company Number: ES-ROCHE-2313379

PATIENT
  Age: 66 Year
  Sex: Male
  Weight: 89.3 kg

DRUGS (26)
  1. TACROLIMUS. [Suspect]
     Active Substance: TACROLIMUS
     Dosage: 1.10 MG, DAILY
     Route: 042
     Dates: start: 20181024, end: 20181026
  2. POSACONAZOLE [Concomitant]
     Active Substance: POSACONAZOLE
     Dosage: UNK
     Route: 065
     Dates: start: 20181114, end: 20190202
  3. PENTAMIDINE [Concomitant]
     Active Substance: PENTAMIDINE
     Dosage: UNK
     Route: 065
     Dates: start: 20181221
  4. INCB039110 [Suspect]
     Active Substance: ITACITINIB
     Indication: GRAFT VERSUS HOST DISEASE
     Dosage: 200 MG, QD
     Route: 048
     Dates: start: 20181026, end: 20190214
  5. ACFOL [Concomitant]
     Active Substance: FOLIC ACID
     Dosage: UNK
     Route: 065
     Dates: start: 20181115
  6. METFORMIN [Concomitant]
     Active Substance: METFORMIN HYDROCHLORIDE
     Dosage: UNK
     Route: 065
     Dates: start: 20181115
  7. TACROLIMUS. [Suspect]
     Active Substance: TACROLIMUS
     Indication: GRAFT VERSUS HOST DISEASE
     Dosage: 0.60 MG, DAILY
     Route: 042
     Dates: start: 20181029, end: 20181105
  8. METHOTREXATE SODIUM. [Suspect]
     Active Substance: METHOTREXATE SODIUM
     Indication: GRAFT VERSUS HOST DISEASE
     Dosage: 30 MG, DAILY
     Route: 065
     Dates: start: 20181030, end: 20181030
  9. INCB039110 [Suspect]
     Active Substance: ITACITINIB
     Dosage: REGIMEN 2
     Route: 048
     Dates: start: 20190227
  10. URSOCHOL [Concomitant]
     Active Substance: URSODIOL
     Dosage: UNK
     Route: 065
     Dates: start: 20181115
  11. TACROLIMUS. [Suspect]
     Active Substance: TACROLIMUS
     Dosage: 0.50 MG, DAILY
     Route: 042
     Dates: start: 20181027, end: 20181029
  12. TACROLIMUS. [Suspect]
     Active Substance: TACROLIMUS
     Dosage: 2.00 MG, DAILY
     Route: 042
     Dates: start: 20181113, end: 20181124
  13. TACROLIMUS. [Suspect]
     Active Substance: TACROLIMUS
     Dosage: 0.50 MG, DAILY
     Route: 042
     Dates: start: 20181128, end: 20181129
  14. CELLCEPT [Suspect]
     Active Substance: MYCOPHENOLATE MOFETIL\MYCOPHENOLATE MOFETIL HYDROCHLORIDE
     Indication: GRAFT VERSUS HOST DISEASE
     Route: 065
     Dates: start: 20181227, end: 20190215
  15. METHOTREXATE SODIUM. [Suspect]
     Active Substance: METHOTREXATE SODIUM
     Dosage: 20 MG, DAILY
     Route: 065
     Dates: start: 20181101
  16. OMEPRAZOLE. [Concomitant]
     Active Substance: OMEPRAZOLE
     Dosage: UNK
     Route: 065
     Dates: start: 20181123
  17. TACROLIMUS. [Suspect]
     Active Substance: TACROLIMUS
     Dosage: 1.00 MG, DAILY
     Route: 042
     Dates: start: 20181109, end: 20181111
  18. TACROLIMUS. [Suspect]
     Active Substance: TACROLIMUS
     Dosage: 0.80 MG, DAILY
     Route: 042
     Dates: start: 20181130, end: 20181201
  19. BENZATHINE BENZYLPENICILLIN [Concomitant]
     Active Substance: PENICILLIN G BENZATHINE
     Dosage: UNK
     Route: 065
     Dates: start: 20181119
  20. ISONIAZID. [Concomitant]
     Active Substance: ISONIAZID
     Dosage: UNK
     Route: 065
     Dates: start: 20181115
  21. VALGANCICLOVIR. [Concomitant]
     Active Substance: VALGANCICLOVIR
     Dosage: UNK
     Route: 065
     Dates: start: 20190123, end: 20190202
  22. VITAMIN B6 [Concomitant]
     Active Substance: PYRIDOXINE HYDROCHLORIDE
     Dosage: UNK
     Route: 065
     Dates: start: 20181115
  23. TACROLIMUS. [Suspect]
     Active Substance: TACROLIMUS
     Dosage: 0.60 MG, DAILY
     Route: 042
     Dates: start: 20181202, end: 20181212
  24. TACROLIMUS. [Suspect]
     Active Substance: TACROLIMUS
     Dosage: 0.80 MG, DAILY
     Route: 042
     Dates: start: 20181213, end: 20181226
  25. TACROLIMUS. [Suspect]
     Active Substance: TACROLIMUS
     Dosage: 1.10 MG, DAILY
     Route: 042
     Dates: start: 20181105, end: 20181109
  26. TACROLIMUS. [Suspect]
     Active Substance: TACROLIMUS
     Dosage: 1.20 MG, DAILY
     Route: 042
     Dates: start: 20181112, end: 20181112

REACTIONS (7)
  - Chest pain [Unknown]
  - Odynophagia [Unknown]
  - Intentional product use issue [Unknown]
  - Off label use [Unknown]
  - Febrile neutropenia [Recovered/Resolved]
  - Cough [Unknown]
  - Asthenia [Unknown]

NARRATIVE: CASE EVENT DATE: 20190213
